FAERS Safety Report 10791143 (Version 2)
Quarter: 2015Q2

REPORT INFORMATION
  Report Type: Other
  Country: GB (occurrence: GB)
  Receive Date: 20150212
  Receipt Date: 20150629
  Transmission Date: 20150821
  Serious: Yes (Hospitalization)
  Sender: FDA-Public Use
  Company Number: GB-MYLANLABS-2015M1003031

PATIENT

DRUGS (3)
  1. QUININE [Suspect]
     Active Substance: QUININE
     Indication: MUSCLE TWITCHING
     Dosage: 300 MG (AT NIGHT)
     Dates: start: 20150102, end: 20150107
  2. PARACETAMOL [Concomitant]
     Active Substance: ACETAMINOPHEN
     Dosage: 1 G, QID
  3. IBUPROFEN. [Concomitant]
     Active Substance: IBUPROFEN
     Dosage: 400 MG, TID

REACTIONS (4)
  - Pruritus [Recovering/Resolving]
  - Rash maculo-papular [Recovering/Resolving]
  - Hypersensitivity [Recovering/Resolving]
  - Oedema mucosal [Recovering/Resolving]
